FAERS Safety Report 6912781-3 (Version None)
Quarter: 2010Q3

REPORT INFORMATION
  Report Type: 
  Country: None (occurrence: None)
  Receive Date: 20100806
  Receipt Date: 20081210
  Transmission Date: 20110219
  Serious: No
  Sender: FDA-Public Use
  Company Number: US-PFIZER INC-2008092743

PATIENT
  Sex: Female

DRUGS (7)
  1. DETROL LA [Suspect]
     Dosage: 4 MG, 1X/DAY
     Dates: start: 20080301
  2. ATENOLOL [Concomitant]
  3. GEMFIBROZIL [Concomitant]
  4. LEVOTHYROXINE [Concomitant]
  5. ALPRAZOLAM [Concomitant]
  6. LISINOPRIL AND HYDROCHLOROTHIAZIDE [Concomitant]
  7. BUPROPION HYDROCHLORIDE [Concomitant]

REACTIONS (2)
  - COELIAC DISEASE [None]
  - LABORATORY TEST ABNORMAL [None]
